FAERS Safety Report 21138503 (Version 1)
Quarter: 2022Q3

REPORT INFORMATION
  Report Type: Spontaneous
  Country: RU (occurrence: None)
  Receive Date: 20220727
  Receipt Date: 20220727
  Transmission Date: 20221027
  Serious: Yes (Other)
  Sender: FDA-Public Use
  Company Number: 2022A263046

PATIENT
  Age: 48 Year
  Sex: Male
  Weight: 103 kg

DRUGS (4)
  1. IMFINZI [Suspect]
     Active Substance: DURVALUMAB
     Indication: Small cell lung cancer extensive stage
     Route: 042
     Dates: start: 20220215, end: 20220519
  2. CARBOPLATIN [Concomitant]
     Active Substance: CARBOPLATIN
  3. BISOPROLOL FUMARATE [Concomitant]
     Active Substance: BISOPROLOL FUMARATE
  4. EDARBI [Concomitant]
     Active Substance: AZILSARTAN KAMEDOXOMIL

REACTIONS (2)
  - Malignant neoplasm progression [Not Recovered/Not Resolved]
  - Metastases to central nervous system [Unknown]
